FAERS Safety Report 13851604 (Version 1)
Quarter: 2017Q3

REPORT INFORMATION
  Report Type: Spontaneous
  Country: US (occurrence: US)
  Receive Date: 20170810
  Receipt Date: 20170810
  Transmission Date: 20171127
  Serious: No
  Sender: FDA-Public Use
  Company Number: US-BIOGEN-2017BI00443603

PATIENT
  Age: 35 Year
  Sex: Female

DRUGS (1)
  1. TYSABRI [Suspect]
     Active Substance: NATALIZUMAB
     Indication: MULTIPLE SCLEROSIS
     Route: 065
     Dates: start: 20130412

REACTIONS (3)
  - Multiple sclerosis [Not Recovered/Not Resolved]
  - Migraine [Not Recovered/Not Resolved]
  - Malaise [Not Recovered/Not Resolved]

NARRATIVE: CASE EVENT DATE: 20170807
